FAERS Safety Report 17521250 (Version 3)
Quarter: 2020Q4

REPORT INFORMATION
  Report Type: Report from Study
  Country: IE (occurrence: IE)
  Receive Date: 20200310
  Receipt Date: 20201110
  Transmission Date: 20210113
  Serious: Yes (Hospitalization, Other)
  Sender: FDA-Public Use
  Company Number: IE-ASPEN-GLO2020IE002317

PATIENT

DRUGS (16)
  1. MABTHERA [Suspect]
     Active Substance: RITUXIMAB
     Dosage: SECOND LINE
     Route: 042
     Dates: start: 20200123
  2. CISPLATIN. [Suspect]
     Active Substance: CISPLATIN
     Indication: DIFFUSE LARGE B-CELL LYMPHOMA
     Dosage: SECOND LINE
     Route: 042
     Dates: start: 20200123
  3. DEXAMETHASONE. [Suspect]
     Active Substance: DEXAMETHASONE
     Indication: DIFFUSE LARGE B-CELL LYMPHOMA
     Dosage: UNK
     Route: 065
     Dates: start: 20200123
  4. CYTARABINE. [Suspect]
     Active Substance: CYTARABINE
     Indication: DIFFUSE LARGE B-CELL LYMPHOMA
     Dosage: FIRST LINE
     Route: 042
     Dates: start: 20190729
  5. MABTHERA [Suspect]
     Active Substance: RITUXIMAB
     Dosage: 525MG, SECOND LINE
     Route: 042
  6. CYCLOPHOSPHAMIDE. [Suspect]
     Active Substance: CYCLOPHOSPHAMIDE
     Indication: DIFFUSE LARGE B-CELL LYMPHOMA
     Dosage: FIRST LINE
     Route: 042
     Dates: start: 20190729
  7. BENDAMUSTINE [Suspect]
     Active Substance: BENDAMUSTINE
     Dosage: 1 CYCLE, THIRD LINE
     Route: 042
     Dates: start: 20200217
  8. DOXORUBICIN [Suspect]
     Active Substance: DOXORUBICIN
     Indication: DIFFUSE LARGE B-CELL LYMPHOMA
     Dosage: FIRST LINE
     Route: 042
     Dates: start: 20190729
  9. METHOTREXATE. [Suspect]
     Active Substance: METHOTREXATE
     Indication: DIFFUSE LARGE B-CELL LYMPHOMA
     Dosage: FIRST LINE
     Route: 042
     Dates: start: 20190729
  10. MABTHERA [Suspect]
     Active Substance: RITUXIMAB
     Indication: DIFFUSE LARGE B-CELL LYMPHOMA
     Dosage: THIRD LINE
     Route: 042
     Dates: start: 20200217
  11. BENDAMUSTINE [Suspect]
     Active Substance: BENDAMUSTINE
     Indication: DIFFUSE LARGE B-CELL LYMPHOMA
     Dosage: 1 CYCLE
     Route: 065
  12. VINCRISTINE [Suspect]
     Active Substance: VINCRISTINE
     Indication: DIFFUSE LARGE B-CELL LYMPHOMA
     Dosage: FIRST LINE
     Route: 042
     Dates: start: 20190729
  13. MABTHERA [Suspect]
     Active Substance: RITUXIMAB
     Dosage: 525 MG, FIRST LINE
     Route: 042
     Dates: start: 20190729
  14. GEMCITABINE. [Suspect]
     Active Substance: GEMCITABINE
     Indication: DIFFUSE LARGE B-CELL LYMPHOMA
     Dosage: SECOND LINE
     Route: 042
     Dates: start: 20200123
  15. POLATUZUMAB VEDOTIN. [Suspect]
     Active Substance: POLATUZUMAB VEDOTIN
     Indication: DIFFUSE LARGE B-CELL LYMPHOMA
     Route: 065
  16. G-CSF [Suspect]
     Active Substance: GRANULOCYTE COLONY-STIMULATING FACTOR NOS
     Indication: DIFFUSE LARGE B-CELL LYMPHOMA
     Route: 065

REACTIONS (8)
  - Skin mass [Unknown]
  - Bone pain [Recovered/Resolved]
  - Thrombocytopenia [Unknown]
  - Cystitis haemorrhagic [Unknown]
  - Diffuse large B-cell lymphoma recurrent [Unknown]
  - Febrile neutropenia [Unknown]
  - Leukaemic lymphoma [Unknown]
  - Bone marrow disorder [Unknown]

NARRATIVE: CASE EVENT DATE: 20200121
